FAERS Safety Report 16135485 (Version 1)
Quarter: 2019Q1

REPORT INFORMATION
  Report Type: Spontaneous
  Country: GB (occurrence: GB)
  Receive Date: 20190329
  Receipt Date: 20190329
  Transmission Date: 20190418
  Serious: Yes (Other)
  Sender: FDA-Public Use
  Company Number: GB-TAKEDA-2019TEU003094

PATIENT
  Age: 68 Year
  Sex: Female
  Weight: 82 kg

DRUGS (13)
  1. MICONAZOLE. [Concomitant]
     Active Substance: MICONAZOLE
     Dosage: UNK UNK, QD
     Dates: start: 20181122
  2. ATORVASTATIN [Concomitant]
     Active Substance: ATORVASTATIN
     Dosage: 20 MILLIGRAM, QD
     Dates: start: 20181109
  3. PIOGLITAZONE. [Suspect]
     Active Substance: PIOGLITAZONE
     Indication: PRODUCT USED FOR UNKNOWN INDICATION
     Dosage: 15 MILLIGRAM
     Route: 048
     Dates: start: 20180516
  4. LINAGLIPTIN [Concomitant]
     Active Substance: LINAGLIPTIN
     Dates: start: 20181109
  5. FLUTIFORM [Concomitant]
     Active Substance: FLUTICASONE PROPIONATE\FORMOTEROL FUMARATE
     Indication: ASTHMA
     Dosage: UNK UNK, QD
     Route: 055
     Dates: start: 20181109
  6. AMLODIPINE [Concomitant]
     Active Substance: AMLODIPINE BESYLATE
     Dosage: 5 MILLIGRAM, QD
     Dates: start: 20181109
  7. RAMIPRIL. [Concomitant]
     Active Substance: RAMIPRIL
     Dosage: 10 MILLIGRAM, QD
     Dates: start: 20181109
  8. BALNEUM PLUS                       /01148801/ [Concomitant]
     Indication: DRY SKIN
     Dosage: UNK
     Dates: start: 20181122
  9. EMPAGLIFLOZIN [Concomitant]
     Active Substance: EMPAGLIFLOZIN
     Dosage: 10 MILLIGRAM, QD
     Dates: start: 20181108
  10. DERMOL                             /01330701/ [Concomitant]
     Dosage: UNK
     Dates: start: 20181122
  11. FUROSEMIDE. [Concomitant]
     Active Substance: FUROSEMIDE
     Dosage: 20 MILLIGRAM, QD
     Dates: start: 20181108
  12. METFORMIN [Concomitant]
     Active Substance: METFORMIN HYDROCHLORIDE
     Dosage: 500 MILLIGRAM
     Dates: start: 20190124
  13. CLOBETASONE [Concomitant]
     Active Substance: CLOBETASONE
     Dosage: UNK
     Dates: start: 20181129

REACTIONS (3)
  - Cardiac failure [Recovering/Resolving]
  - Dyspnoea [Recovering/Resolving]
  - Pericardial effusion [Recovering/Resolving]

NARRATIVE: CASE EVENT DATE: 20181019
